FAERS Safety Report 8999990 (Version 1)
Quarter: 2013Q1

REPORT INFORMATION
  Report Type: Spontaneous
  Country: DE (occurrence: DE)
  Receive Date: 20130102
  Receipt Date: 20130102
  Transmission Date: 20140127
  Serious: Yes (Death)
  Sender: FDA-Public Use
  Company Number: DE-PFIZER INC-2012330937

PATIENT
  Age: 78 Year
  Sex: Female
  Weight: 43 kg

DRUGS (3)
  1. SUNITINIB MALATE [Suspect]
     Indication: THYROID CANCER METASTATIC
     Dosage: 25 MG, 2X/DAY
     Route: 048
     Dates: start: 20120914, end: 20121031
  2. CEFTRIAXONE [Concomitant]
     Indication: DIVERTICULITIS
     Dosage: 2 G, 1X/DAY
     Route: 042
     Dates: start: 20121025, end: 20121031
  3. METRONIDAZOLE [Concomitant]
     Indication: DIVERTICULITIS
     Dosage: 500 MG, 3X/DAY
     Route: 042
     Dates: start: 20121025, end: 20121031

REACTIONS (2)
  - Acute hepatic failure [Fatal]
  - Multi-organ failure [Fatal]
